FAERS Safety Report 24746931 (Version 2)
Quarter: 2025Q1

REPORT INFORMATION
  Report Type: Report from Study
  Country: CA (occurrence: CA)
  Receive Date: 20241218
  Receipt Date: 20250201
  Transmission Date: 20250408
  Serious: Yes (Death, Other)
  Sender: IPSEN BIOPHARMACEUTICALS, INC.
  Company Number: CA-IPSEN Group, Research and Development-2024-25765

PATIENT
  Age: 89 Year
  Sex: Male

DRUGS (12)
  1. LANREOTIDE ACETATE [Suspect]
     Active Substance: LANREOTIDE ACETATE
     Indication: Gastroenteropancreatic neuroendocrine tumour disease
     Dosage: DEEP SUBCUTANEOUS, 120MG/0.5ML
     Route: 058
     Dates: start: 20240517
  2. LATANOPROST,TIMOLOL [Concomitant]
     Active Substance: LATANOPROST\TIMOLOL
  3. JAMP FER FC [Concomitant]
     Dosage: 300 MG 1 CO DIE
  4. VITAMIN D3 [Concomitant]
     Active Substance: CHOLECALCIFEROL
  5. RAMIPRIL [Concomitant]
     Active Substance: RAMIPRIL
     Dosage: 1 CO DIE
  6. DEXLANSOPRAZOLE [Concomitant]
     Active Substance: DEXLANSOPRAZOLE
     Dosage: 60 MG 1 CO DIE
  7. CREON [Concomitant]
     Active Substance: PANCRELIPASE AMYLASE\PANCRELIPASE LIPASE\PANCRELIPASE PROTEASE
     Dosage: 100000 UNIT, 3 CO TID
  8. RISEDRONATE SODIUM [Concomitant]
     Active Substance: RISEDRONATE SODIUM
     Dosage: 35 MG1 CO DIE
  9. ATORVASTATIN [Concomitant]
     Active Substance: ATORVASTATIN
     Dosage: 10 MG 1 CO DIE
  10. AMLODIPINE [Concomitant]
     Active Substance: AMLODIPINE BESYLATE
     Dosage: 5 MG 1 CO DIE
  11. SITAGLIPTIN METFORMIN [METFORMIN HYDROCHLORIDE;SITAGLIPTIN PHOSPHATE] [Concomitant]
     Dosage: 500+50 MG TID
  12. MIRADEGRON [Concomitant]

REACTIONS (7)
  - Death [Fatal]
  - Pulmonary embolism [Unknown]
  - Malignant neoplasm progression [Unknown]
  - Terminal state [Unknown]
  - Fall [Unknown]
  - Nausea [Unknown]
  - Asthenia [Unknown]

NARRATIVE: CASE EVENT DATE: 20241125
